FAERS Safety Report 8730548 (Version 2)
Quarter: 2012Q4

REPORT INFORMATION
  Report Type: 
  Country: US (occurrence: US)
  Receive Date: 20120817
  Receipt Date: 20120924
  Transmission Date: 20130627
  Serious: Yes (Other)
  Sender: FDA-Public Use
  Company Number: US-ASTRAZENECA-2010SE44827

PATIENT
  Age: 71 Year
  Sex: Male

DRUGS (2)
  1. NEXIUM [Suspect]
     Dosage: 2 CAPSULES DAILY
     Route: 048
  2. ALBUTEROL [Concomitant]

REACTIONS (10)
  - Pneumothorax [Unknown]
  - Renal failure chronic [Unknown]
  - Hearing impaired [Unknown]
  - Blood iron decreased [Unknown]
  - Haemoglobin increased [Unknown]
  - Gastrooesophageal reflux disease [Unknown]
  - Abdominal discomfort [Unknown]
  - Malaise [Unknown]
  - Intentional drug misuse [Unknown]
  - Drug ineffective [Unknown]
